FAERS Safety Report 6434403-0 (Version None)
Quarter: 2009Q4

REPORT INFORMATION
  Report Type: 
  Country: None (occurrence: None)
  Receive Date: 20091110
  Receipt Date: 20090421
  Transmission Date: 20100525
  Serious: No
  Sender: FDA-Public Use
  Company Number: US-ASTRAZENECA-2009SE08921

PATIENT
  Sex: Female

DRUGS (8)
  1. PRILOSEC OTC [Suspect]
     Route: 002
  2. BLOOD THINNER [Concomitant]
     Dosage: UNKNOWN
  3. PILL TO CALM NERVES [Concomitant]
     Dosage: UNKNOWN
  4. BLOOD PRESSURE MEDICATION [Concomitant]
     Dosage: UNKNOWN
  5. DIURETICS [Concomitant]
     Dosage: UNKNOWN
  6. VITAMINS                           /90003601/ [Concomitant]
     Dosage: UNKNOWN
  7. CALCIUM [Concomitant]
     Dosage: UNKNOWN
  8. OSCAL                              /00108001/ [Concomitant]
     Dosage: UNKNOWN

REACTIONS (2)
  - DRY MOUTH [None]
  - LIP DRY [None]
